FAERS Safety Report 4958145-3 (Version None)
Quarter: 2006Q1

REPORT INFORMATION
  Report Type: 
  Country: None (occurrence: None)
  Receive Date: 20060330
  Receipt Date: 20060320
  Transmission Date: 20060701
  Serious: Yes (Hospitalization)
  Sender: FDA-Public Use
  Company Number: US-AMGEN-US172350

PATIENT
  Sex: Male
  Weight: 71.7 kg

DRUGS (12)
  1. ARANESP [Suspect]
     Indication: DIALYSIS
     Route: 058
     Dates: start: 20050329, end: 20060316
  2. AMIODARONE [Concomitant]
  3. ASPIRIN [Concomitant]
  4. LIPITOR [Concomitant]
  5. BETAXOLOL [Concomitant]
  6. CALCIUM CARBONATE [Concomitant]
  7. COREG [Concomitant]
  8. HYDRALAZINE HYDROCHLORIDE [Concomitant]
  9. LOTENSIN [Concomitant]
  10. NEPHRO-VITE [Concomitant]
  11. ZOCOR [Concomitant]
  12. ATORVASTATIN CALCIUM [Concomitant]

REACTIONS (5)
  - C-REACTIVE PROTEIN INCREASED [None]
  - GASTROINTESTINAL HAEMORRHAGE [None]
  - POLYP COLORECTAL [None]
  - SWEAT GLAND INFECTION [None]
  - THERAPEUTIC RESPONSE DECREASED [None]
